FAERS Safety Report 16600464 (Version 1)
Quarter: 2019Q3

REPORT INFORMATION
  Report Type: Spontaneous
  Country: ES (occurrence: ES)
  Receive Date: 20190719
  Receipt Date: 20190719
  Transmission Date: 20191004
  Serious: Yes (Death, Hospitalization)
  Sender: FDA-Public Use
  Company Number: ES-ASTRAZENECA-2019SF03533

PATIENT
  Age: 89 Year
  Sex: Female

DRUGS (1)
  1. BUDESONIDE/FORMOTEROL [Suspect]
     Active Substance: BUDESONIDE\FORMOTEROL
     Dosage: 160/4.5 MCG; 1 INHALATION EVERY 12 HOURS
     Route: 055

REACTIONS (1)
  - Nocardiosis [Fatal]

NARRATIVE: CASE EVENT DATE: 2015
